FAERS Safety Report 9398986 (Version 1)
Quarter: 2013Q3

REPORT INFORMATION
  Report Type: Spontaneous
  Country: US (occurrence: US)
  Receive Date: 20130714
  Receipt Date: 20130714
  Transmission Date: 20140515
  Serious: No
  Sender: FDA-Public Use
  Company Number: US-TEVA-417750USA

PATIENT
  Age: 54 Year
  Sex: Female

DRUGS (1)
  1. ACTIQ [Suspect]
     Route: 048

REACTIONS (3)
  - Withdrawal syndrome [Unknown]
  - Muscle spasms [Unknown]
  - Hypopnoea [Unknown]
